FAERS Safety Report 15838148 (Version 1)
Quarter: 2019Q1

REPORT INFORMATION
  Report Type: Spontaneous
  Country: GB (occurrence: GB)
  Receive Date: 20190117
  Receipt Date: 20190117
  Transmission Date: 20190417
  Serious: Yes (Disabling)
  Sender: FDA-Public Use
  Company Number: GB-PFIZER INC-2019019097

PATIENT
  Age: 70 Year
  Sex: Female

DRUGS (2)
  1. PHENYTOIN SODIUM. [Suspect]
     Active Substance: PHENYTOIN SODIUM
     Indication: CREUTZFELDT-JAKOB DISEASE
     Dosage: 300 MG, ONCE DAILY
     Route: 042
  2. CLOBAZAM. [Interacting]
     Active Substance: CLOBAZAM
     Indication: CREUTZFELDT-JAKOB DISEASE
     Dosage: 30 MG, 1X/DAY
     Route: 048
     Dates: start: 20181206

REACTIONS (2)
  - Anticonvulsant drug level decreased [Unknown]
  - Potentiating drug interaction [Not Recovered/Not Resolved]
